FAERS Safety Report 20778099 (Version 1)
Quarter: 2022Q2

REPORT INFORMATION
  Report Type: Spontaneous
  Country: US (occurrence: None)
  Receive Date: 20220502
  Receipt Date: 20220502
  Transmission Date: 20220721
  Serious: No
  Sender: FDA-Public Use
  Company Number: None

PATIENT
  Age: 34 Year
  Sex: Female
  Weight: 63 kg

DRUGS (1)
  1. DEXTROAMPHETAMINE [Suspect]
     Active Substance: DEXTROAMPHETAMINE
     Indication: Attention deficit hyperactivity disorder
     Dosage: OTHER QUANTITY : 1 TABLET(S);?FREQUENCY : 3 TIMES A DAY;?
     Route: 048
     Dates: start: 20220417, end: 20220427

REACTIONS (13)
  - Product substitution issue [None]
  - Job dissatisfaction [None]
  - Drug ineffective [None]
  - Loss of personal independence in daily activities [None]
  - Headache [None]
  - Asthenia [None]
  - Nausea [None]
  - Dizziness [None]
  - Flushing [None]
  - Feeling hot [None]
  - Erythema [None]
  - Pruritus [None]
  - Balance disorder [None]

NARRATIVE: CASE EVENT DATE: 20220417
